FAERS Safety Report 23909891 (Version 1)
Quarter: 2024Q2

REPORT INFORMATION
  Report Type: Report from Study
  Country: GB (occurrence: GB)
  Receive Date: 20240528
  Receipt Date: 20240528
  Transmission Date: 20240716
  Serious: Yes (Other)
  Sender: FDA-Public Use
  Company Number: GB-TEVA-VS-3201191

PATIENT
  Age: 27 Year
  Sex: Male

DRUGS (1)
  1. AJOVY [Suspect]
     Active Substance: FREMANEZUMAB-VFRM
     Route: 065

REACTIONS (8)
  - Visual impairment [Unknown]
  - Headache [Unknown]
  - Rash [Unknown]
  - Rash erythematous [Unknown]
  - Groin pain [Recovering/Resolving]
  - Dry skin [Unknown]
  - Eczema [Unknown]
  - Hypersomnia [Unknown]

NARRATIVE: CASE EVENT DATE: 20240520
